FAERS Safety Report 8407206-5 (Version None)
Quarter: 2012Q2

REPORT INFORMATION
  Report Type: 
  Country: None (occurrence: None)
  Receive Date: 20120604
  Receipt Date: 20120523
  Transmission Date: 20120825
  Serious: Yes (Hospitalization, Other)
  Sender: FDA-Public Use
  Company Number: US-ELI_LILLY_AND_COMPANY-US201204001620

PATIENT
  Sex: Female

DRUGS (13)
  1. FORTEO [Suspect]
     Indication: OSTEOPOROSIS
     Dosage: 20 UG, QD
     Dates: start: 20101001
  2. DYAZIDE [Concomitant]
     Dosage: UNK, QD
  3. DICLOFENAC SODIUM [Concomitant]
  4. VITAMIN D [Concomitant]
     Dosage: 5000 IU, UNK
  5. FORTEO [Suspect]
     Dosage: 20 UG, QD
  6. COQ10 [Concomitant]
  7. PLAVIX [Concomitant]
  8. CLONIDINE [Concomitant]
     Dosage: UNK, QD
  9. HYDROCODONE [Concomitant]
     Dosage: 7.5 MG, UNK
  10. COREG [Concomitant]
     Dosage: UNK, BID
  11. VITAMINS NOS [Concomitant]
  12. STRESSTAB WITH ZINC [Concomitant]
  13. PREDNISONE [Concomitant]

REACTIONS (16)
  - THROMBOSIS [None]
  - CATARACT [None]
  - RIB FRACTURE [None]
  - STRESS [None]
  - MUSCULOSKELETAL CHEST PAIN [None]
  - STENT PLACEMENT [None]
  - BACK PAIN [None]
  - DECREASED APPETITE [None]
  - DYSPNOEA [None]
  - BLINDNESS UNILATERAL [None]
  - SURGERY [None]
  - ROAD TRAFFIC ACCIDENT [None]
  - BACK INJURY [None]
  - WEIGHT DECREASED [None]
  - GENERAL PHYSICAL HEALTH DETERIORATION [None]
  - DRUG DOSE OMISSION [None]
